FAERS Safety Report 24744166 (Version 2)
Quarter: 2025Q2

REPORT INFORMATION
  Report Type: Report from Study
  Country: CA (occurrence: CA)
  Receive Date: 20241217
  Receipt Date: 20250402
  Transmission Date: 20250717
  Serious: Yes (Other)
  Sender: ALEXION PHARMACEUTICALS
  Company Number: CA-AstraZeneca-2024A161669

PATIENT

DRUGS (3)
  1. CAPIVASERTIB [Suspect]
     Active Substance: CAPIVASERTIB
     Indication: Breast cancer metastatic
     Dosage: 400 MILLIGRAM, BID
  2. FASLODEX [Suspect]
     Active Substance: FULVESTRANT
     Indication: Breast cancer metastatic
     Dosage: 500 MILLIGRAM, Q4W
  3. FASLODEX [Suspect]
     Active Substance: FULVESTRANT

REACTIONS (8)
  - Toxicity to various agents [Unknown]
  - Skin toxicity [Unknown]
  - Diarrhoea [Unknown]
  - Rash erythematous [Unknown]
  - Decreased appetite [Unknown]
  - Pruritus [Unknown]
  - Skin exfoliation [Unknown]
  - Therapy cessation [Unknown]
